FAERS Safety Report 9056589 (Version 2)
Quarter: 2013Q1

REPORT INFORMATION
  Report Type: Report from Study
  Country: US (occurrence: US)
  Receive Date: 20130204
  Receipt Date: 20130228
  Transmission Date: 20140127
  Serious: Yes (Other)
  Sender: FDA-Public Use
  Company Number: US-MYLANLABS-2013S1002038

PATIENT
  Age: 22 Year
  Sex: Female

DRUGS (4)
  1. CLARAVIS [Suspect]
     Dates: start: 20121106
  2. AMNESTEEM CAPSULES [Suspect]
     Dosage: 40MG DAILY ON M,T,TH, F
     Dates: end: 201301
  3. AMNESTEEM CAPSULES [Suspect]
     Dates: start: 201301, end: 201301
  4. ORAL CONTRACEPTIVE NOS [Concomitant]
     Dates: end: 201301

REACTIONS (13)
  - Abortion induced [Recovered/Resolved]
  - Exposure during pregnancy [Recovered/Resolved]
  - Nasopharyngitis [Recovered/Resolved]
  - Headache [Recovered/Resolved]
  - Rash [Recovered/Resolved]
  - Arthralgia [Recovered/Resolved]
  - Dysmenorrhoea [Recovered/Resolved]
  - Dry skin [Recovered/Resolved]
  - Eye swelling [Recovered/Resolved]
  - Hallucination [Recovered/Resolved]
  - Hypersomnia [Recovered/Resolved]
  - Gait disturbance [Recovered/Resolved]
  - Vision blurred [Recovered/Resolved]
